FAERS Safety Report 8346424-1 (Version None)
Quarter: 2012Q2

REPORT INFORMATION
  Report Type: 
  Country: None (occurrence: None)
  Receive Date: 20120509
  Receipt Date: 20120508
  Transmission Date: 20120825
  Serious: Yes (Other)
  Sender: FDA-Public Use
  Company Number: US-PFIZER INC-2012112224

PATIENT
  Sex: Female

DRUGS (1)
  1. PHENYTOIN SODIUM [Suspect]
     Dosage: UNK

REACTIONS (1)
  - CONVULSION [None]
